FAERS Safety Report 24882472 (Version 1)
Quarter: 2025Q1

REPORT INFORMATION
  Report Type: Spontaneous
  Country: TR (occurrence: TR)
  Receive Date: 20250124
  Receipt Date: 20250124
  Transmission Date: 20250408
  Serious: Yes (Other)
  Sender: ACCORD
  Company Number: TR-MLMSERVICE-20250107-PI342469-00165-1

PATIENT
  Age: 66 Year
  Sex: Male

DRUGS (1)
  1. GEMCITABINE [Suspect]
     Active Substance: GEMCITABINE
     Indication: Lung cancer metastatic

REACTIONS (2)
  - Panniculitis [Unknown]
  - Deep vein thrombosis [Unknown]
